FAERS Safety Report 4903755-2 (Version None)
Quarter: 2006Q1

REPORT INFORMATION
  Report Type: 
  Country: None (occurrence: None)
  Receive Date: 20060113
  Receipt Date: 20051122
  Transmission Date: 20060701
  Serious: No
  Sender: FDA-Public Use
  Company Number: 2005SP004147

PATIENT
  Age: 34 Year
  Sex: Female
  Weight: 81.6475 kg

DRUGS (1)
  1. LUNESTA [Suspect]
     Indication: INITIAL INSOMNIA
     Dosage: 2 MG; PRN; ORAL
     Route: 048
     Dates: start: 20051121

REACTIONS (1)
  - INITIAL INSOMNIA [None]
